FAERS Safety Report 26203756 (Version 1)
Quarter: 2025Q4

REPORT INFORMATION
  Report Type: Spontaneous
  Country: US (occurrence: US)
  Receive Date: 20251226
  Receipt Date: 20251226
  Transmission Date: 20260118
  Serious: Yes (Other)
  Sender: NOVO NORDISK
  Company Number: US-NOVOPROD-1588822

PATIENT
  Age: 34 Year
  Sex: Male

DRUGS (1)
  1. WEGOVY [Suspect]
     Active Substance: SEMAGLUTIDE
     Indication: Product used for unknown indication
     Dosage: 1.7 MG
     Dates: start: 2024

REACTIONS (2)
  - Lymphoma [Unknown]
  - Food allergy [Unknown]

NARRATIVE: CASE EVENT DATE: 20251201
